FAERS Safety Report 4939441-2 (Version None)
Quarter: 2006Q1

REPORT INFORMATION
  Report Type: 
  Country: None (occurrence: None)
  Receive Date: 20060306
  Receipt Date: 20060222
  Transmission Date: 20060701
  Serious: No
  Sender: FDA-Public Use
  Company Number: 02100-EUR-05-0006

PATIENT
  Age: 50 Year
  Sex: Male

DRUGS (6)
  1. CILOSTAZOL [Suspect]
     Indication: INTERMITTENT CLAUDICATION
     Dosage: 200 MG ORAL
     Route: 048
     Dates: start: 20040823, end: 20050923
  2. LISINOPRIL [Concomitant]
  3. ATENOLOL [Concomitant]
  4. ATORVASTATIN CALCIUM [Concomitant]
  5. ACETYLSALICYLIC ACID SRT [Concomitant]
  6. HYDROXYCARBAMIDE [Concomitant]

REACTIONS (1)
  - ORTHOSTATIC HYPOTENSION [None]
